FAERS Safety Report 5205989-9 (Version None)
Quarter: 2007Q1

REPORT INFORMATION
  Report Type: 
  Country: None (occurrence: None)
  Receive Date: 20070111
  Receipt Date: 20070104
  Transmission Date: 20070707
  Serious: Yes (Life-Threatening, Hospitalization)
  Sender: FDA-Public Use
  Company Number: DE-JNJFOC-20061105272

PATIENT
  Sex: Male
  Weight: 55 kg

DRUGS (7)
  1. TOPAMAX [Suspect]
     Dosage: 100 - 0 - 50 MG
     Route: 048
     Dates: start: 20030201
  2. TOPAMAX [Suspect]
     Indication: EPILEPSY
     Route: 048
     Dates: start: 20030201
  3. TEGRETOL [Concomitant]
     Dosage: 400 - 0 - 400
     Route: 048
  4. TEGRETOL [Concomitant]
     Dosage: 400 - 400 - 400
     Route: 048
  5. CARBAMAZEPIN RETARD [Concomitant]
     Dosage: 600 - 0 - 600 MG
     Route: 048
  6. CARBAMAZEPIN RETARD [Concomitant]
     Dosage: 0- 0 - 400
     Route: 048
  7. CARBAMAZEPIN RETARD [Concomitant]
     Dosage: 400 - 0 - 400
     Route: 048

REACTIONS (3)
  - CONVULSION [None]
  - MANTLE CELL LYMPHOMA STAGE III [None]
  - STATUS EPILEPTICUS [None]
